FAERS Safety Report 25935151 (Version 1)
Quarter: 2025Q4

REPORT INFORMATION
  Report Type: Spontaneous
  Country: US (occurrence: None)
  Receive Date: 20251016
  Receipt Date: 20251016
  Transmission Date: 20260118
  Serious: Yes (Disabling, Other)
  Sender: FDA-CTU
  Company Number: None

PATIENT
  Age: 40 Year
  Sex: Female
  Weight: 67.5 kg

DRUGS (2)
  1. WEGOVY [Suspect]
     Active Substance: SEMAGLUTIDE
     Indication: Weight decreased
     Dosage: OTHER FREQUENCY : WEEKLY;?
     Route: 058
     Dates: start: 20240612, end: 20251007
  2. Prozac 40 mg 25 mg of hydroxyzine [Concomitant]

REACTIONS (5)
  - Hormone level abnormal [None]
  - Malaise [None]
  - Postmenopause [None]
  - Infertility [None]
  - Blood oestrogen decreased [None]

NARRATIVE: CASE EVENT DATE: 20251014
